FAERS Safety Report 4698515-4 (Version None)
Quarter: 2005Q2

REPORT INFORMATION
  Report Type: 
  Country: None (occurrence: None)
  Receive Date: 20050623
  Receipt Date: 20050608
  Transmission Date: 20051028
  Serious: Yes (Other)
  Sender: FDA-Public Use
  Company Number: IT-BRISTOL-MYERS SQUIBB COMPANY-12999926

PATIENT
  Age: 74 Year
  Sex: Male

DRUGS (3)
  1. CETUXIMAB [Suspect]
     Indication: NON-SMALL CELL LUNG CANCER
     Dosage: MOST RECENT CETUXIMAB INFUSION ADMINISTERED ON 26-MAY-2005 (4TH). 03-JUN-2005 CETUXIMAB DELAYED.
     Route: 041
     Dates: start: 20050505
  2. CISPLATIN [Suspect]
     Indication: NON-SMALL CELL LUNG CANCER
     Dosage: MOST RECENT CISPLATIN INFUSION ADMINISTERED ON 26-MAY-2005 (2ND). 03-JUN-2005 CISPLATIN DELAYED.
     Route: 042
     Dates: start: 20050505
  3. VINORELBINE [Suspect]
     Indication: NON-SMALL CELL LUNG CANCER
     Dosage: MOST RECENT VINORELBINE INFUSION ADMINISTERED ON 26-MAY-2005 (3RD). 03-JUN-2005 DELAYED.
     Route: 042
     Dates: start: 20050505

REACTIONS (1)
  - NEUTROPENIA [None]
